FAERS Safety Report 7355301-4 (Version None)
Quarter: 2011Q1

REPORT INFORMATION
  Report Type: 
  Country: None (occurrence: None)
  Receive Date: 20110316
  Receipt Date: 20110222
  Transmission Date: 20110831
  Serious: Yes (Hospitalization)
  Sender: FDA-Public Use
  Company Number: FR-ROCHE-685997

PATIENT
  Sex: Female
  Weight: 77 kg

DRUGS (3)
  1. TRASTUZUMAB [Suspect]
     Dosage: LOADING DOSE
     Route: 058
  2. EFFERALGAN [Concomitant]
     Dates: start: 20090326, end: 20100216
  3. TRASTUZUMAB [Suspect]
     Dosage: LAST DOSE PRIOR TO SAE:26 JANUARY 2010. MAINTENANCE DOSE. TEMPORARILY INTERRUPTED. MAINTENANCE DOSE.
     Route: 058
     Dates: start: 20090330, end: 20100216

REACTIONS (1)
  - CYTOLYTIC HEPATITIS [None]
